FAERS Safety Report 5712023-0 (Version None)
Quarter: 2008Q2

REPORT INFORMATION
  Report Type: 
  Country: None (occurrence: None)
  Receive Date: 20080417
  Receipt Date: 20080404
  Transmission Date: 20081010
  Serious: Yes (Hospitalization)
  Sender: FDA-Public Use
  Company Number: 2008000803

PATIENT
  Age: 67 Year
  Sex: Male

DRUGS (2)
  1. ERLOTINIB (ERLOTINIB HCL) (TABLET) (ERLOTINIB HCL ) [Suspect]
     Indication: NON-SMALL CELL LUNG CANCER
     Dosage: (100 MG),ORAL
     Route: 048
     Dates: start: 20070926, end: 20080310
  2. ERLOTINIB (ERLOTINIB HCL) (TABLET) (ERLOTINIB HCL ) [Suspect]
     Indication: NON-SMALL CELL LUNG CANCER
     Dosage: (100 MG),ORAL
     Route: 048
     Dates: start: 20080326

REACTIONS (3)
  - ILEOSTOMY CLOSURE [None]
  - PROCEDURAL SITE REACTION [None]
  - SCAR [None]
